FAERS Safety Report 23458685 (Version 1)
Quarter: 2024Q1

REPORT INFORMATION
  Report Type: Report from Study
  Country: US (occurrence: US)
  Receive Date: 20240130
  Receipt Date: 20240130
  Transmission Date: 20240409
  Serious: Yes (Other)
  Sender: FDA-Public Use
  Company Number: US-ABBVIE-5604937

PATIENT
  Age: 56 Year
  Sex: Male

DRUGS (1)
  1. RINVOQ [Suspect]
     Active Substance: UPADACITINIB
     Indication: Product used for unknown indication
     Route: 048
     Dates: start: 20231015

REACTIONS (3)
  - Cartilage atrophy [Not Recovered/Not Resolved]
  - Pain in extremity [Unknown]
  - Spondylitis [Unknown]

NARRATIVE: CASE EVENT DATE: 20231001
